FAERS Safety Report 9018869 (Version 1)
Quarter: 2013Q1

REPORT INFORMATION
  Report Type: Spontaneous
  Country: US (occurrence: US)
  Receive Date: 20130118
  Receipt Date: 20130118
  Transmission Date: 20140127
  Serious: Yes (Other)
  Sender: FDA-Public Use
  Company Number: US-009507513-1301USA004339

PATIENT
  Sex: Female

DRUGS (7)
  1. SINGULAIR [Suspect]
     Indication: ASTHMA
  2. MUCOSTA [Suspect]
     Dosage: 1 DF, QD
     Route: 048
  3. MUCOSOLVAN [Suspect]
     Indication: ASTHMA
     Dosage: 1 DF, QD
     Route: 048
  4. INDOMETHACIN [Concomitant]
  5. SURGAM [Concomitant]
  6. OZEX (ROFECOXIB) [Concomitant]
     Route: 048
  7. IBUPROFEN [Concomitant]

REACTIONS (6)
  - Throat irritation [Unknown]
  - Rash [Unknown]
  - Pruritus [Unknown]
  - Laryngeal oedema [Unknown]
  - Face oedema [Unknown]
  - Urticaria [Unknown]
